FAERS Safety Report 8797928 (Version 1)
Quarter: 2012Q4

REPORT INFORMATION
  Report Type: Report from Study
  Country: US (occurrence: US)
  Receive Date: 20120919
  Receipt Date: 20120919
  Transmission Date: 20130627
  Serious: Yes (Other)
  Sender: FDA-Public Use
  Company Number: US-US-EMD SERONO, INC.-7161200

PATIENT
  Sex: Male

DRUGS (1)
  1. EGRIFTA [Suspect]
     Indication: LIPODYSTROPHY ACQUIRED
     Dates: start: 201205

REACTIONS (7)
  - Cardiomegaly [Unknown]
  - Cardiac function test abnormal [Unknown]
  - Hypersomnia [Unknown]
  - Benign prostatic hyperplasia [Not Recovered/Not Resolved]
  - Dysuria [Not Recovered/Not Resolved]
  - Sciatica [Recovering/Resolving]
  - Inappropriate schedule of drug administration [Unknown]
